FAERS Safety Report 8680279 (Version 2)
Quarter: 2012Q4

REPORT INFORMATION
  Report Type: 
  Country: FR (occurrence: FR)
  Receive Date: 20120724
  Receipt Date: 20121211
  Transmission Date: 20130627
  Serious: Yes (Hospitalization)
  Sender: FDA-Public Use
  Company Number: FR-BAYER-2012-072643

PATIENT
  Age: 72 Year
  Sex: Male

DRUGS (9)
  1. IZILOX [Suspect]
     Indication: MYCOBACTERIAL INFECTION
     Dosage: Daily dose 400 mg
     Route: 048
     Dates: start: 201111, end: 20120503
  2. IZILOX [Suspect]
     Indication: MYCOBACTERIAL INFECTION
     Dosage: 400 mg, QD
     Dates: start: 20120620, end: 201210
  3. ANSATIPINE [Suspect]
     Indication: MYCOBACTERIAL INFECTION
     Dosage: UNK
     Route: 048
     Dates: start: 201111, end: 20120503
  4. ZECLAR [Suspect]
     Indication: MYCOBACTERIAL INFECTION
     Dosage: 100 mg, BID
     Route: 048
     Dates: start: 201111, end: 20120503
  5. ZECLAR [Suspect]
     Indication: MYCOBACTERIAL INFECTION
     Dosage: 100 mg, BID
     Dates: start: 20120620, end: 201210
  6. MUCOMYST [Concomitant]
     Dosage: UNK
     Dates: start: 201204, end: 20120503
  7. MUCOMYST [Concomitant]
     Dosage: UNK
     Dates: start: 20120620
  8. CACIT D3 [Concomitant]
     Dosage: UNK
     Dates: start: 201204, end: 20120503
  9. CACIT D3 [Concomitant]
     Dosage: UNK
     Dates: start: 20120620

REACTIONS (2)
  - Uveitis [Recovered/Resolved]
  - Rash [Recovering/Resolving]
